FAERS Safety Report 25454786 (Version 2)
Quarter: 2025Q2

REPORT INFORMATION
  Report Type: Spontaneous
  Country: US (occurrence: US)
  Receive Date: 20250619
  Receipt Date: 20250623
  Transmission Date: 20250716
  Serious: Yes (Life-Threatening, Hospitalization)
  Sender: REGENERON
  Company Number: US-REGENERON PHARMACEUTICALS, INC.-2025-095880

PATIENT
  Sex: Female

DRUGS (4)
  1. PRALUENT [Suspect]
     Active Substance: ALIROCUMAB
     Indication: Product used for unknown indication
     Dosage: EVERY 2 WEEKS
     Route: 065
  2. METOPROLOL [Concomitant]
     Active Substance: METOPROLOL
     Indication: Product used for unknown indication
  3. ASPIRIN [Concomitant]
     Active Substance: ASPIRIN
     Indication: Product used for unknown indication
  4. OZEMPIC [Concomitant]
     Active Substance: SEMAGLUTIDE
     Indication: Blood cholesterol abnormal

REACTIONS (19)
  - Organ failure [Recovering/Resolving]
  - Cholelithiasis [Unknown]
  - Post procedural complication [Unknown]
  - Decreased appetite [Recovering/Resolving]
  - Taste disorder [Recovering/Resolving]
  - Fatigue [Recovering/Resolving]
  - Illness [Unknown]
  - Weight decreased [Unknown]
  - Blood pressure abnormal [Unknown]
  - Abdominal pain [Unknown]
  - Abdominal distension [Unknown]
  - Dyspnoea [Unknown]
  - Dyspnoea [Unknown]
  - Dyspnoea [Unknown]
  - Diaphragmatic disorder [Unknown]
  - Pain [Unknown]
  - Bone pain [Unknown]
  - Gait disturbance [Unknown]
  - Myalgia [Unknown]
